FAERS Safety Report 5207988-X (Version None)
Quarter: 2007Q1

REPORT INFORMATION
  Report Type: 
  Country: None (occurrence: None)
  Receive Date: 20070115
  Receipt Date: 20070104
  Transmission Date: 20070707
  Serious: Yes (Other)
  Sender: FDA-Public Use
  Company Number: DE-JNJFOC-20070100892

PATIENT
  Sex: Female

DRUGS (1)
  1. REMICADE [Suspect]
     Indication: RHEUMATOID ARTHRITIS
     Dosage: 2 INFUSIONS
     Route: 042

REACTIONS (6)
  - ALOPECIA AREATA [None]
  - ALOPECIA TOTALIS [None]
  - ALOPECIA UNIVERSALIS [None]
  - AUTOIMMUNE THYROIDITIS [None]
  - IRON DEFICIENCY ANAEMIA [None]
  - PSYCHIATRIC SYMPTOM [None]
